FAERS Safety Report 17750169 (Version 2)
Quarter: 2020Q3

REPORT INFORMATION
  Report Type: Report from Study
  Country: US (occurrence: US)
  Receive Date: 20200506
  Receipt Date: 20200710
  Transmission Date: 20201102
  Serious: Yes (Death, Hospitalization)
  Sender: FDA-Public Use
  Company Number: US-ROCHE-2571725

PATIENT
  Age: 78 Year
  Sex: Male
  Weight: 90.8 kg

DRUGS (18)
  1. DULOXETINE. [Concomitant]
     Active Substance: DULOXETINE
     Route: 048
  2. CHLORHEXIDINE [Concomitant]
     Active Substance: CHLORHEXIDINE
     Route: 048
  3. COLLAGENASE SANTYL [Concomitant]
     Active Substance: COLLAGENASE CLOSTRIDIUM HISTOLYTICUM
     Route: 061
  4. ASPIRIN [ACETYLSALICYLIC ACID] [Concomitant]
     Active Substance: ASPIRIN
     Route: 048
  5. CHOLESTYRAMINE. [Concomitant]
     Active Substance: CHOLESTYRAMINE
     Dosage: FOR 11 DAYS ;ONGOING: YES
     Route: 048
  6. VACCINIUM SPP. [Concomitant]
     Route: 048
  7. HYDROXYZINE [Concomitant]
     Active Substance: HYDROXYZINE HYDROCHLORIDE
     Indication: ANXIETY
     Route: 048
  8. VITAMIN B COMPLEX [Concomitant]
     Active Substance: CYANOCOBALAMIN\DEXPANTHENOL\NIACINAMIDE\PYRIDOXINE HYDROCHLORIDE\RIBOFLAVIN 5^-PHOSPHATE SODIUM\THIAMINE HYDROCHLORIDE\VITAMIN B COMPLEX
     Route: 048
  9. BREO ELLIPTA [Concomitant]
     Active Substance: FLUTICASONE FUROATE\VILANTEROL TRIFENATATE
     Route: 055
  10. ALBUTEROL [SALBUTAMOL] [Concomitant]
     Active Substance: ALBUTEROL
     Route: 055
  11. OCREVUS [Suspect]
     Active Substance: OCRELIZUMAB
     Indication: RELAPSING-REMITTING MULTIPLE SCLEROSIS
     Dosage: 30 MG/ML? INITIAL DOSE ;ONGOING: YES
     Route: 042
     Dates: start: 20200317, end: 20200317
  12. LEVOCETIRIZINE [Concomitant]
     Active Substance: LEVOCETIRIZINE
     Route: 048
  13. MIRTAZAPINE. [Concomitant]
     Active Substance: MIRTAZAPINE
     Route: 048
  14. MUCINEX [Concomitant]
     Active Substance: GUAIFENESIN
     Route: 048
  15. MELATONIN [Concomitant]
     Active Substance: MELATONIN
     Dosage: AT BEDTIME ;ONGOING: YES
     Route: 048
  16. FINASTERIDE. [Concomitant]
     Active Substance: FINASTERIDE
     Route: 048
  17. DEPAKOTE [Concomitant]
     Active Substance: DIVALPROEX SODIUM
     Route: 048
  18. BETAMETASONE DIPROPIONATO [Concomitant]
     Indication: BLISTER
     Dosage: AS NEEDED ;ONGOING: UNKNOWN
     Route: 061

REACTIONS (4)
  - Fall [Fatal]
  - Abnormal behaviour [Not Recovered/Not Resolved]
  - Urinary tract infection [Recovered/Resolved]
  - Balance disorder [Fatal]

NARRATIVE: CASE EVENT DATE: 20200318
